FAERS Safety Report 20386100 (Version 2)
Quarter: 2022Q1

REPORT INFORMATION
  Report Type: Spontaneous
  Country: CA (occurrence: CA)
  Receive Date: 20220127
  Receipt Date: 20220304
  Transmission Date: 20220423
  Serious: Yes (Death)
  Sender: FDA-Public Use
  Company Number: CA-PFIZER INC-2021694632

PATIENT
  Age: 77 Year
  Sex: Female

DRUGS (18)
  1. REVATIO [Suspect]
     Active Substance: SILDENAFIL CITRATE
     Indication: Pulmonary arterial hypertension
     Dosage: 20 MG, 3X/DAY
     Route: 048
     Dates: start: 20210518
  2. REVATIO [Suspect]
     Active Substance: SILDENAFIL CITRATE
     Dosage: 20 MG, 2X/DAY
     Route: 048
  3. MYCOPHENOLIC ACID [Concomitant]
     Active Substance: MYCOPHENOLIC ACID
     Dosage: UNK
  4. BREO ELLIPTA [Concomitant]
     Active Substance: FLUTICASONE FUROATE\VILANTEROL TRIFENATATE
  5. BISOPROLOL [Concomitant]
     Active Substance: BISOPROLOL
     Dosage: UNK
  6. ELIQUIS [Concomitant]
     Active Substance: APIXABAN
     Dosage: UNK
  7. FERROUS GLUCONATE [Concomitant]
     Active Substance: FERROUS GLUCONATE
     Dosage: UNK
  8. FLUOXETINE [Concomitant]
     Active Substance: FLUOXETINE HYDROCHLORIDE
     Dosage: UNK
  9. FUROSEMIDE [Concomitant]
     Active Substance: FUROSEMIDE
     Dosage: UNK
  10. LANSOPRAZOLE [Concomitant]
     Active Substance: LANSOPRAZOLE
     Dosage: UNK
  11. MAXIDEX [Concomitant]
     Active Substance: DEXAMETHASONE
     Dosage: UNK
  12. PRAVASTATIN [Concomitant]
     Active Substance: PRAVASTATIN
  13. ALBUTEROL [Concomitant]
     Active Substance: ALBUTEROL
     Dosage: UNK
  14. OLANZAPINE [Concomitant]
     Active Substance: OLANZAPINE
  15. SPIRIVA [Concomitant]
     Active Substance: TIOTROPIUM BROMIDE MONOHYDRATE
     Dosage: UNK
  16. TELMISARTAN [Concomitant]
     Active Substance: TELMISARTAN
     Dosage: UNK
  17. SUCRALFATE [Concomitant]
     Active Substance: SUCRALFATE
  18. ATROPINE SULFATE [Concomitant]
     Active Substance: ATROPINE SULFATE

REACTIONS (5)
  - Death [Fatal]
  - Abdominal discomfort [Unknown]
  - Nausea [Unknown]
  - Vision blurred [Recovering/Resolving]
  - Off label use [Unknown]

NARRATIVE: CASE EVENT DATE: 20211219
